FAERS Safety Report 8760795 (Version 1)
Quarter: 2012Q4

REPORT INFORMATION
  Report Type: 
  Country: US (occurrence: US)
  Receive Date: 20120830
  Receipt Date: 20120830
  Transmission Date: 20130627
  Serious: Yes (Other)
  Sender: FDA-Public Use
  Company Number: US-SANOFI-AVENTIS-2012SA060657

PATIENT
  Age: 61 Year
  Sex: Male

DRUGS (4)
  1. LANTUS [Suspect]
     Dosage: Dose:38 unit(s)
     Route: 058
     Dates: start: 201110
  2. LANTUS [Suspect]
     Route: 058
  3. HUMALOG [Concomitant]
  4. CORTISONE [Concomitant]

REACTIONS (4)
  - Knee arthroplasty [Unknown]
  - Blood glucose increased [Unknown]
  - Blood glucose decreased [Recovered/Resolved]
  - Dry mouth [Recovered/Resolved]
